FAERS Safety Report 7757806-0 (Version None)
Quarter: 2011Q3

REPORT INFORMATION
  Report Type: 
  Country: None (occurrence: None)
  Receive Date: 20110918
  Receipt Date: 20110912
  Transmission Date: 20111222
  Serious: Yes (Life-Threatening, Hospitalization, Other)
  Sender: FDA-Public Use
  Company Number: PH-ASTRAZENECA-2011SE36342

PATIENT
  Age: 18126 Day
  Sex: Male
  Weight: 78.7 kg

DRUGS (6)
  1. METOPRIM [Concomitant]
     Route: 048
     Dates: start: 20110612
  2. ESOMEPRAZOLE SODIUM [Concomitant]
     Route: 042
     Dates: start: 20110612
  3. MEROPENEM [Suspect]
     Indication: INFECTION
     Dosage: 1 GM EVER 8 HOURS
     Route: 042
     Dates: start: 20110612, end: 20110613
  4. TRAMADOL HCL [Concomitant]
     Route: 042
     Dates: start: 20110612
  5. TELMISARTAN+HCTZ [Concomitant]
     Dosage: 80/12.5 MG TID
     Route: 048
     Dates: start: 20110612
  6. ACETAMINOPHEN [Concomitant]
     Route: 042
     Dates: start: 20110612

REACTIONS (4)
  - ACUTE RESPIRATORY FAILURE [None]
  - DRUG HYPERSENSITIVITY [None]
  - ANAPHYLACTIC SHOCK [None]
  - SWOLLEN TONGUE [None]
